FAERS Safety Report 25890176 (Version 1)
Quarter: 2025Q4

REPORT INFORMATION
  Report Type: Spontaneous
  Country: US (occurrence: None)
  Receive Date: 20251007
  Receipt Date: 20251007
  Transmission Date: 20260117
  Serious: Yes (Death, Hospitalization)
  Sender: FDA-CTU
  Company Number: None

PATIENT
  Age: 69 Year
  Sex: Male
  Weight: 44.9 kg

DRUGS (2)
  1. TAXOL [Suspect]
     Active Substance: PACLITAXEL
     Dates: end: 20250910
  2. RAMUCIRUMAB [Suspect]
     Active Substance: RAMUCIRUMAB
     Dates: end: 20250910

REACTIONS (20)
  - Mental status changes [None]
  - Diarrhoea [None]
  - Hypophagia [None]
  - Asthenia [None]
  - Hypoglycaemia [None]
  - Hyponatraemia [None]
  - Metabolic acidosis [None]
  - Thrombocytopenia [None]
  - Tachycardia [None]
  - Malnutrition [None]
  - Pericardial effusion [None]
  - Metabolic encephalopathy [None]
  - Failure to thrive [None]
  - Pneumonia [None]
  - Aspiration [None]
  - Fall [None]
  - Skin laceration [None]
  - Unresponsive to stimuli [None]
  - Hypothermia [None]
  - Ascites [None]

NARRATIVE: CASE EVENT DATE: 20250921
